FAERS Safety Report 7149952-X (Version None)
Quarter: 2010Q4

REPORT INFORMATION
  Report Type: 
  Country: None (occurrence: None)
  Receive Date: 20101210
  Receipt Date: 20081223
  Transmission Date: 20110411
  Serious: No
  Sender: FDA-Public Use
  Company Number: 2008BI034861

PATIENT
  Age: 53 Year
  Sex: Female

DRUGS (1)
  1. TYSABRI [Suspect]
     Indication: MULTIPLE SCLEROSIS
     Route: 042
     Dates: start: 20080904

REACTIONS (10)
  - ARTHRALGIA [None]
  - FALL [None]
  - HEADACHE [None]
  - JOINT SWELLING [None]
  - MOBILITY DECREASED [None]
  - ORAL HERPES [None]
  - PARAESTHESIA [None]
  - SENSATION OF HEAVINESS [None]
  - THROMBOSIS [None]
  - URINARY TRACT INFECTION [None]
